FAERS Safety Report 5450354-2 (Version None)
Quarter: 2007Q3

REPORT INFORMATION
  Report Type: 
  Country: None (occurrence: None)
  Receive Date: 20070912
  Receipt Date: 20070910
  Transmission Date: 20080115
  Serious: Yes (Hospitalization)
  Sender: FDA-Public Use
  Company Number: US-BAXTER-2007BH007530

PATIENT
  Age: 67 Year
  Sex: Male

DRUGS (2)
  1. DIANEAL [Suspect]
     Indication: PERITONEAL DIALYSIS
     Route: 033
     Dates: start: 20070102
  2. DIANEAL [Suspect]
     Indication: PERITONEAL DIALYSIS
     Route: 033
     Dates: start: 20070102

REACTIONS (4)
  - GASTRIC DISORDER [None]
  - HAEMORRHAGE URINARY TRACT [None]
  - NEPHROLITHIASIS [None]
  - URETHRAL HAEMORRHAGE [None]
